FAERS Safety Report 4766729-0 (Version None)
Quarter: 2005Q3

REPORT INFORMATION
  Report Type: 
  Country: None (occurrence: None)
  Receive Date: 20050912
  Receipt Date: 20050311
  Transmission Date: 20060218
  Serious: Yes (Disabling)
  Sender: FDA-Public Use
  Company Number: US-MERCK-0503USA02720

PATIENT
  Age: 50 Year
  Sex: Male
  Weight: 79 kg

DRUGS (5)
  1. VIOXX [Suspect]
     Indication: ARTHRALGIA
     Route: 048
     Dates: start: 20000401, end: 20040101
  2. TYLENOL [Concomitant]
     Route: 065
  3. EFFEXOR [Concomitant]
     Route: 065
     Dates: start: 20031101, end: 20040301
  4. BEXTRA [Concomitant]
     Route: 065
     Dates: start: 20040101
  5. ASPIRIN [Concomitant]
     Route: 065
     Dates: start: 20040101

REACTIONS (8)
  - ARTHRALGIA [None]
  - BLOOD CHOLESTEROL INCREASED [None]
  - CEREBROVASCULAR ACCIDENT [None]
  - DYSPEPSIA [None]
  - FEELING ABNORMAL [None]
  - HYPERSENSITIVITY [None]
  - MYOCARDIAL INFARCTION [None]
  - THROMBOSIS [None]
